FAERS Safety Report 9752713 (Version 1)
Quarter: 2013Q4

REPORT INFORMATION
  Report Type: Spontaneous
  Country: US (occurrence: None)
  Receive Date: 20131212
  Receipt Date: 20131212
  Transmission Date: 20140711
  Serious: No
  Sender: FDA-Public Use
  Company Number: None

PATIENT
  Age: 58 Year
  Sex: Female

DRUGS (1)
  1. AMOXICILLIN [Suspect]
     Indication: DENTAL CARE
     Dosage: AMOX 500MG 4 CAPS/HR BEFORE APPT BY MOUTH
     Route: 048
     Dates: start: 20130918

REACTIONS (6)
  - Product quality issue [None]
  - Product substitution issue [None]
  - Respiratory disorder [None]
  - Inflammation [None]
  - Ill-defined disorder [None]
  - Chest discomfort [None]
